FAERS Safety Report 22227634 (Version 1)
Quarter: 2023Q2

REPORT INFORMATION
  Report Type: Spontaneous
  Country: FR (occurrence: FR)
  Receive Date: 20230419
  Receipt Date: 20230419
  Transmission Date: 20230722
  Serious: Yes (Hospitalization)
  Sender: FDA-Public Use
  Company Number: FR-AFSSAPS-DJ2023000304

PATIENT
  Age: 52 Year
  Sex: Female
  Weight: 47 kg

DRUGS (3)
  1. OXALIPLATIN [Suspect]
     Active Substance: OXALIPLATIN
     Indication: Angiocentric lymphoma
     Dosage: 150 MILLIGRAM, 1DOSE/1CYCLIC
     Route: 040
     Dates: start: 20230208
  2. GEMCITABINE [Suspect]
     Active Substance: GEMCITABINE
     Indication: Angiocentric lymphoma
     Dosage: 1500 MILLIGRAM, 1DOSE/1CYCLIC
     Route: 040
     Dates: start: 20230208
  3. KEYTRUDA [Suspect]
     Active Substance: PEMBROLIZUMAB
     Indication: Angiocentric lymphoma
     Dosage: 200 MILLIGRAM, 1DOSE/1CYCLIC
     Route: 040
     Dates: start: 20230208

REACTIONS (1)
  - Pancytopenia [Recovering/Resolving]

NARRATIVE: CASE EVENT DATE: 20230213
